FAERS Safety Report 23821150 (Version 2)
Quarter: 2024Q2

REPORT INFORMATION
  Report Type: Report from Study
  Country: US (occurrence: None)
  Receive Date: 20240506
  Receipt Date: 20240528
  Transmission Date: 20240716
  Serious: Yes (Other)
  Sender: FDA-Public Use
  Company Number: 2024A049271

PATIENT
  Sex: Male
  Weight: 86.2 kg

DRUGS (1)
  1. TEZEPELUMAB-EKKO [Suspect]
     Active Substance: TEZEPELUMAB-EKKO
     Indication: Asthma
     Route: 058

REACTIONS (5)
  - Pneumonia [Unknown]
  - COVID-19 [Unknown]
  - Injection site pain [Recovered/Resolved]
  - Drug dose omission by device [Recovering/Resolving]
  - Device defective [Unknown]
